FAERS Safety Report 23831360 (Version 8)
Quarter: 2024Q3

REPORT INFORMATION
  Report Type: Spontaneous
  Country: US (occurrence: US)
  Receive Date: 20240508
  Receipt Date: 20240926
  Transmission Date: 20241017
  Serious: No
  Sender: PFIZER
  Company Number: US-PFIZER INC-202400101662

PATIENT
  Age: 15 Year
  Sex: Male
  Weight: 84.37 kg

DRUGS (2)
  1. GENOTROPIN [Suspect]
     Active Substance: SOMATROPIN
     Indication: Prader-Willi syndrome
     Dosage: UNK
  2. MODAFINIL [Concomitant]
     Active Substance: MODAFINIL
     Indication: Somnolence
     Dosage: 400 MILLIGRAMS, ONCE DAILY, ORALLY, TABLET
     Route: 048

REACTIONS (4)
  - Drug dose omission by device [Unknown]
  - Expired device used [Unknown]
  - Device information output issue [Unknown]
  - Device mechanical issue [Unknown]

NARRATIVE: CASE EVENT DATE: 20240504
